FAERS Safety Report 13531764 (Version 2)
Quarter: 2017Q2

REPORT INFORMATION
  Report Type: Spontaneous
  Country: CH (occurrence: FI)
  Receive Date: 20170510
  Receipt Date: 20170522
  Transmission Date: 20170830
  Serious: Yes (Hospitalization)
  Sender: FDA-Public Use
  Company Number: CH-LPDUSPRD-20170569

PATIENT
  Age: 32 Year
  Sex: Male

DRUGS (11)
  1. KETIPINOR [Concomitant]
     Active Substance: QUETIAPINE FUMARATE
     Dosage: 100 MG
     Route: 048
  2. NORSPAN [Concomitant]
     Active Substance: BUPRENORPHINE
     Dosage: UNKNOWN
  3. PANADOL [Concomitant]
     Active Substance: ACETAMINOPHEN
     Dosage: UNKNKOWN
     Route: 048
  4. MICROGYNON [Concomitant]
     Active Substance: ETHINYL ESTRADIOL\LEVONORGESTREL ACETATE
     Dosage: UNKNOWN
     Route: 048
  5. PARIET [Concomitant]
     Active Substance: RABEPRAZOLE SODIUM
     Dosage: 20 MG
     Route: 048
  6. FERINJECT [Suspect]
     Active Substance: FERRIC CARBOXYMALTOSE
     Dosage: 1000 MG
     Route: 041
     Dates: start: 20170320
  7. TAMICTOR [Concomitant]
     Dosage: 0.4 MR
     Route: 048
  8. METFOREM [Concomitant]
     Active Substance: METFORMIN HYDROCHLORIDE
     Dosage: 1500 MG
  9. RIVATRIEL [Concomitant]
     Dosage: UNKNOWN
     Route: 048
  10. LITALGIN [Concomitant]
     Active Substance: PITOFENONE
     Dosage: UNKNOWN
  11. ESTRADOT [Concomitant]
     Active Substance: ESTRADIOL
     Dosage: UNKNOWN
     Route: 062

REACTIONS (10)
  - Vomiting [Recovered/Resolved]
  - Dysgeusia [Recovered/Resolved]
  - Faeces discoloured [Recovered/Resolved]
  - Abdominal pain [Recovered/Resolved]
  - Fatigue [Recovered/Resolved]
  - Hypersomnia [Recovered/Resolved]
  - Diarrhoea [Recovered/Resolved]
  - Weight decreased [Recovering/Resolving]
  - Bedridden [Recovered/Resolved]
  - Nausea [Recovered/Resolved]

NARRATIVE: CASE EVENT DATE: 20170321
